FAERS Safety Report 13781872 (Version 1)
Quarter: 2017Q3

REPORT INFORMATION
  Report Type: Spontaneous
  Country: FR (occurrence: FR)
  Receive Date: 20170724
  Receipt Date: 20170724
  Transmission Date: 20171127
  Serious: Yes (Hospitalization)
  Sender: FDA-Public Use
  Company Number: FR-SA-2017SA128316

PATIENT
  Age: 70 Year
  Sex: Male

DRUGS (3)
  1. IMMUCYST [Suspect]
     Active Substance: BACILLUS CALMETTE-GUERIN SUBSTRAIN CONNAUGHT LIVE ANTIGEN
     Indication: BLADDER CANCER
     Dosage: ONE INJECTION ONCE WEEKLY DOSE
     Route: 043
     Dates: start: 20170509, end: 20170509
  2. IMMUCYST [Suspect]
     Active Substance: BACILLUS CALMETTE-GUERIN SUBSTRAIN CONNAUGHT LIVE ANTIGEN
     Indication: BLADDER CANCER
     Dosage: ONE INJECTION ONCE WEEKLY DOSE
     Route: 043
     Dates: start: 20170502, end: 20170502
  3. STAGID [Concomitant]
     Active Substance: METFORMIN PAMOATE
     Route: 065

REACTIONS (5)
  - Hepatocellular injury [Not Recovered/Not Resolved]
  - Fall [Not Recovered/Not Resolved]
  - Pyrexia [Not Recovered/Not Resolved]
  - Malaise [Not Recovered/Not Resolved]
  - Haematuria [Not Recovered/Not Resolved]

NARRATIVE: CASE EVENT DATE: 20170509
